FAERS Safety Report 9426815 (Version 1)
Quarter: 2013Q3

REPORT INFORMATION
  Report Type: Spontaneous
  Country: US (occurrence: US)
  Receive Date: 20130730
  Receipt Date: 20130730
  Transmission Date: 20140515
  Serious: Yes (Other)
  Sender: FDA-Public Use
  Company Number: US-SANOFI-AVENTIS-2013SA037932

PATIENT
  Age: 62 Year
  Sex: Female
  Weight: 58.96 kg

DRUGS (6)
  1. ZOLPIDEM TARTRATE [Suspect]
     Indication: PRODUCT USED FOR UNKNOWN INDICATION
     Route: 048
     Dates: start: 20120103
  2. LAPATINIB [Suspect]
     Indication: BREAST CANCER
     Route: 048
     Dates: start: 20111229, end: 201212
  3. NALTREXONE HYDROCHLORIDE [Concomitant]
  4. EXEMESTANE [Concomitant]
  5. PECTIN [Concomitant]
  6. CEFUROXIME AXETIL [Concomitant]

REACTIONS (14)
  - Bronchitis [Not Recovered/Not Resolved]
  - Respiratory tract infection [Unknown]
  - Hand deformity [Unknown]
  - Finger deformity [Unknown]
  - Chest pain [Not Recovered/Not Resolved]
  - Dry skin [Not Recovered/Not Resolved]
  - Eyelid oedema [Recovered/Resolved]
  - Pruritus generalised [Unknown]
  - Headache [Unknown]
  - Depression [Unknown]
  - Nausea [Unknown]
  - Cough [Unknown]
  - Fatigue [Recovered/Resolved]
  - Asthenia [Unknown]
